FAERS Safety Report 4632659-8 (Version None)
Quarter: 2005Q2

REPORT INFORMATION
  Report Type: 
  Country: None (occurrence: None)
  Receive Date: 20050331
  Receipt Date: 20040916
  Transmission Date: 20051028
  Serious: Yes (Other)
  Sender: FDA-Public Use
  Company Number: 200414487BCC

PATIENT
  Age: 34 Year
  Sex: Male
  Weight: 102.0593 kg

DRUGS (1)
  1. ALEVE [Suspect]
     Dosage: 440 MG, ONCE, ORAL
     Route: 048
     Dates: start: 20040916

REACTIONS (6)
  - HYPERSENSITIVITY [None]
  - LIP DISORDER [None]
  - OEDEMA MOUTH [None]
  - SKIN HYPERTROPHY [None]
  - SWELLING FACE [None]
  - TONGUE DISORDER [None]
